FAERS Safety Report 15676062 (Version 1)
Quarter: 2018Q4

REPORT INFORMATION
  Report Type: Spontaneous
  Country: HR (occurrence: HR)
  Receive Date: 20181130
  Receipt Date: 20181130
  Transmission Date: 20190205
  Serious: Yes (Other)
  Sender: FDA-Public Use
  Company Number: HR-PFIZER INC-2018489715

PATIENT
  Age: 34 Year
  Sex: Male

DRUGS (5)
  1. ZELDOX [Suspect]
     Active Substance: ZIPRASIDONE
     Dosage: 40 MG, 2X/DAY
     Dates: start: 2017
  2. ZELDOX [Suspect]
     Active Substance: ZIPRASIDONE
     Dosage: 80 MG, 2X/DAY
  3. VALPROAT [Suspect]
     Active Substance: VALPROATE SODIUM
     Dosage: 300 MG, 3X/DAY
     Dates: start: 2017
  4. ZELDOX [Suspect]
     Active Substance: ZIPRASIDONE
     Dosage: 60 MG, 2X/DAY
  5. DIAZEPAM. [Concomitant]
     Active Substance: DIAZEPAM
     Dosage: 5 MG, 1X/DAY (0,1,0)

REACTIONS (1)
  - Mental impairment [Unknown]

NARRATIVE: CASE EVENT DATE: 2017
